FAERS Safety Report 4368938-1 (Version None)
Quarter: 2004Q2

REPORT INFORMATION
  Report Type: 
  Country: None (occurrence: None)
  Receive Date: 20040527
  Receipt Date: 20040511
  Transmission Date: 20050107
  Serious: Yes (Other)
  Sender: FDA-Public Use
  Company Number: US_0405102976

PATIENT
  Age: 77 Year
  Sex: Female
  Weight: 60 kg

DRUGS (2)
  1. HUMALOG [Suspect]
     Indication: DIABETES MELLITUS
     Dates: start: 19960101
  2. LANTUS [Concomitant]

REACTIONS (2)
  - BLINDNESS [None]
  - PHARMACEUTICAL PRODUCT COMPLAINT [None]
